APPROVED DRUG PRODUCT: CEFAZOLIN SODIUM
Active Ingredient: CEFAZOLIN SODIUM
Strength: EQ 500MG BASE/VIAL
Dosage Form/Route: INJECTABLE;INJECTION
Application: A063016 | Product #002
Applicant: TEVA PHARMACEUTICALS USA
Approved: Mar 14, 1989 | RLD: No | RS: No | Type: DISCN